FAERS Safety Report 8443702 (Version 4)
Quarter: 2013Q3

REPORT INFORMATION
  Report Type: Report from Study
  Country: AU (occurrence: AU)
  Receive Date: 20120306
  Receipt Date: 20130807
  Transmission Date: 20140515
  Serious: Yes (Other)
  Sender: FDA-Public Use
  Company Number: PHHY2012AU016836

PATIENT
  Age: 37 Year
  Sex: Male

DRUGS (3)
  1. CLOZARIL [Suspect]
     Indication: SCHIZOPHRENIA
     Dosage: 275 MG, UNK
     Route: 048
  2. CLOZARIL [Suspect]
     Dosage: 200 MG, UNK
     Dates: start: 20110616
  3. AMISULPRIDE [Concomitant]
     Dosage: 200 MG, NOCTE DAILY
     Route: 048
     Dates: end: 20130722

REACTIONS (2)
  - Diastolic dysfunction [Recovered/Resolved]
  - Electrocardiogram QT prolonged [Recovered/Resolved]
